FAERS Safety Report 10066338 (Version 1)
Quarter: 2014Q2

REPORT INFORMATION
  Report Type: Spontaneous
  Country: DE (occurrence: DE)
  Receive Date: 20140408
  Receipt Date: 20140408
  Transmission Date: 20141212
  Serious: Yes (Life-Threatening)
  Sender: FDA-Public Use
  Company Number: DE-WATSON-2013-25100

PATIENT
  Age: 40 Year
  Sex: Male
  Weight: 103 kg

DRUGS (2)
  1. CITALOPRAM (UNKNOWN) [Suspect]
     Indication: DEPRESSION
     Route: 048
     Dates: start: 201304, end: 201306
  2. MIRTAZAPINE (UNKNOWN) [Suspect]
     Indication: DEPRESSION
     Route: 048
     Dates: start: 201304, end: 201306

REACTIONS (1)
  - Rhabdomyolysis [Recovered/Resolved]
